FAERS Safety Report 7315801-X (Version None)
Quarter: 2011Q1

REPORT INFORMATION
  Report Type: 
  Country: None (occurrence: None)
  Receive Date: 20110119
  Receipt Date: 20100609
  Transmission Date: 20110831
  Serious: No
  Sender: FDA-Public Use
  Company Number: A-NJ2010-37239

PATIENT
  Age: 69 Year
  Sex: Female

DRUGS (2)
  1. TRACLEER [Suspect]
     Indication: PULMONARY ARTERIAL HYPERTENSION
     Dosage: ORAL
     Route: 048
     Dates: start: 20100409
  2. VENTAVIS [Concomitant]

REACTIONS (2)
  - FLUID RETENTION [None]
  - OEDEMA PERIPHERAL [None]
